FAERS Safety Report 7337974-5 (Version None)
Quarter: 2011Q1

REPORT INFORMATION
  Report Type: 
  Country: None (occurrence: None)
  Receive Date: 20110308
  Receipt Date: 20110301
  Transmission Date: 20110831
  Serious: Yes (Hospitalization)
  Sender: FDA-Public Use
  Company Number: JP-ROCHE-763830

PATIENT
  Age: 66 Year
  Sex: Female

DRUGS (3)
  1. MUCOSTA [Concomitant]
     Dosage: FORM: PERORAL AGENT. DOSAGE IS UNCERTAIN. TAKEN AS NEEDED
     Route: 048
  2. XELODA [Suspect]
     Indication: BREAST CANCER METASTATIC
     Route: 048
     Dates: start: 20101115
  3. LOXONIN [Concomitant]
     Dosage: FORM: PERORAL AGENT. DOSAGE IS UNCERTAIN. TAKEN AS NEEDED
     Route: 048

REACTIONS (2)
  - LUNG DISORDER [None]
  - PYREXIA [None]
